FAERS Safety Report 6907906-X (Version None)
Quarter: 2010Q3

REPORT INFORMATION
  Report Type: 
  Country: None (occurrence: None)
  Receive Date: 20100805
  Receipt Date: 20100723
  Transmission Date: 20110219
  Serious: Yes (Other)
  Sender: FDA-Public Use
  Company Number: PHHY2010FR48923

PATIENT
  Age: 61 Year
  Sex: Female

DRUGS (2)
  1. LETROZOLE [Suspect]
     Indication: BREAST CANCER
     Dosage: UNK
     Dates: start: 20080201
  2. EXEMESTANE [Concomitant]
     Dosage: UNK
     Dates: start: 20080601

REACTIONS (4)
  - ARTHRALGIA [None]
  - JOINT SWELLING [None]
  - RHEUMATOID ARTHRITIS [None]
  - SICCA SYNDROME [None]
